FAERS Safety Report 5172609-1 (Version None)
Quarter: 2006Q4

REPORT INFORMATION
  Report Type: 
  Country: None (occurrence: None)
  Receive Date: 20061205
  Receipt Date: 20061129
  Transmission Date: 20070319
  Serious: Yes (Death)
  Sender: FDA-Public Use
  Company Number: 229174

PATIENT
  Age: 44 Year
  Sex: Female
  Weight: 45.8 kg

DRUGS (9)
  1. MABTHERA (RITUXIMAB) CONC FOR SOLUTION FOR INFUSION [Suspect]
     Indication: DRUG USE FOR UNKNOWN INDICATION
     Dosage: 325 MG/M2, 4/WEEK, INTRAVENOUS
     Route: 042
     Dates: start: 20020801, end: 20050901
  2. CIDOFOVIR (CIDOFOVIR) [Concomitant]
  3. FOLIC ACID [Concomitant]
  4. HYDROXYCHLOROQUINE (HYDROXYCHLOROQUINE SULFATE) [Concomitant]
  5. IMMUNE GLOBULIN INTRAVENOUS (HUMAN) [Concomitant]
  6. LEVOMEPROMAZINE (METHOTRIMEPRAZINE) [Concomitant]
  7. PROBENECID [Concomitant]
  8. LEVOTHYROXINE SODIUM [Concomitant]
  9. IMMUNE GLOBULIN INTRAVENOUS (HUMAN) [Concomitant]

REACTIONS (1)
  - PROGRESSIVE MULTIFOCAL LEUKOENCEPHALOPATHY [None]
